FAERS Safety Report 15389698 (Version 1)
Quarter: 2018Q3

REPORT INFORMATION
  Report Type: Spontaneous
  Country: US (occurrence: US)
  Receive Date: 20180917
  Receipt Date: 20180917
  Transmission Date: 20181010
  Serious: No
  Sender: FDA-Public Use
  Company Number: US-AUROBINDO-AUR-APU-2018-004647

PATIENT
  Sex: Female
  Weight: 58.05 kg

DRUGS (1)
  1. PAROXETINE. [Suspect]
     Active Substance: PAROXETINE
     Indication: PANIC ATTACK
     Dosage: 20 MG, UNK
     Route: 065
     Dates: start: 20180125

REACTIONS (2)
  - Nightmare [Unknown]
  - Electric shock [Unknown]
